FAERS Safety Report 6216860-8 (Version None)
Quarter: 2009Q2

REPORT INFORMATION
  Report Type: 
  Country: None (occurrence: None)
  Receive Date: 20090603
  Receipt Date: 20090603
  Transmission Date: 20091009
  Serious: Yes (Hospitalization)
  Sender: FDA-Public Use
  Company Number: None

PATIENT
  Age: 66 Year
  Sex: Male
  Weight: 119.296 kg

DRUGS (6)
  1. WALGREENS MUCUS RELEIF DR [Suspect]
     Indication: ANTITUSSIVE THERAPY
     Dosage: 1 TABLET X 4 HRS 4 HOURS ORAL
     Route: 048
     Dates: start: 20090310, end: 20090311
  2. DIOVAN [Concomitant]
  3. WARFARIN SODIUM [Concomitant]
  4. FURMOSIMIDE [Concomitant]
  5. KLOR-CON [Concomitant]
  6. SIMVASTATIN [Concomitant]

REACTIONS (1)
  - THINKING ABNORMAL [None]
